FAERS Safety Report 4534768-0 (Version None)
Quarter: 2004Q4

REPORT INFORMATION
  Report Type: 
  Country: None (occurrence: None)
  Receive Date: 20041222
  Receipt Date: 20040217
  Transmission Date: 20050328
  Serious: No
  Sender: FDA-Public Use
  Company Number: US-BRISTOL-MYERS SQUIBB COMPANY-12508990

PATIENT
  Age: 56 Year
  Sex: Male
  Weight: 77 kg

DRUGS (6)
  1. PRAVACHOL [Suspect]
     Indication: BLOOD CHOLESTEROL INCREASED
     Route: 048
  2. MULTI-VITAMIN [Concomitant]
  3. CHONDROITIN + GLUCOSAMINE [Concomitant]
  4. CALCIUM [Concomitant]
  5. VITAMIN C AND E [Concomitant]
  6. FLAXSEED OIL [Concomitant]

REACTIONS (1)
  - MEMORY IMPAIRMENT [None]
